FAERS Safety Report 6410275-5 (Version None)
Quarter: 2009Q4

REPORT INFORMATION
  Report Type: 
  Country: None (occurrence: None)
  Receive Date: 20091022
  Receipt Date: 20091019
  Transmission Date: 20100525
  Serious: Yes (Death, Hospitalization)
  Sender: FDA-Public Use
  Company Number: A0812672A

PATIENT
  Sex: Female

DRUGS (1)
  1. SERETIDE [Suspect]
     Indication: ALLERGIC BRONCHITIS
     Dosage: 2U TWICE PER DAY
     Route: 055
     Dates: start: 20081001, end: 20091004

REACTIONS (3)
  - ILL-DEFINED DISORDER [None]
  - ISCHAEMIC STROKE [None]
  - PNEUMONIA [None]
